FAERS Safety Report 7483108-6 (Version None)
Quarter: 2011Q2

REPORT INFORMATION
  Report Type: 
  Country: None (occurrence: None)
  Receive Date: 20110516
  Receipt Date: 20100507
  Transmission Date: 20111010
  Serious: Yes (Other)
  Sender: FDA-Public Use
  Company Number: DE-GENENTECH-318538

PATIENT
  Age: 57 Year

DRUGS (1)
  1. LUCENTIS [Suspect]
     Indication: MACULAR DEGENERATION
     Dosage: UNK
     Route: 031
     Dates: start: 20100208

REACTIONS (6)
  - MALAISE [None]
  - VISUAL ACUITY REDUCED [None]
  - BLOOD PRESSURE INCREASED [None]
  - PYELONEPHRITIS [None]
  - DIPLOPIA [None]
  - AGE-RELATED MACULAR DEGENERATION [None]
